FAERS Safety Report 18372825 (Version 2)
Quarter: 2020Q4

REPORT INFORMATION
  Report Type: Spontaneous
  Country: BR (occurrence: BR)
  Receive Date: 20201012
  Receipt Date: 20201019
  Transmission Date: 20210114
  Serious: Yes (Other)
  Sender: FDA-Public Use
  Company Number: BR-PFIZER INC-2020387206

PATIENT
  Age: 39 Year
  Sex: Male

DRUGS (1)
  1. XALKORI [Suspect]
     Active Substance: CRIZOTINIB
     Indication: LUNG ADENOCARCINOMA STAGE IV
     Dosage: UNK
     Dates: start: 201701

REACTIONS (6)
  - Limb injury [Not Recovered/Not Resolved]
  - Device related thrombosis [Unknown]
  - Abscess limb [Not Recovered/Not Resolved]
  - Sporotrichosis [Unknown]
  - Cellulitis [Not Recovered/Not Resolved]
  - Phlebitis [Unknown]

NARRATIVE: CASE EVENT DATE: 202005
